FAERS Safety Report 4491668-2 (Version None)
Quarter: 2004Q4

REPORT INFORMATION
  Report Type: 
  Country: None (occurrence: None)
  Receive Date: 20041103
  Receipt Date: 20041025
  Transmission Date: 20050328
  Serious: Yes (Other)
  Sender: FDA-Public Use
  Company Number: US-BRISTOL-MYERS SQUIBB COMPANY-12744504

PATIENT
  Age: 67 Year
  Sex: Female

DRUGS (3)
  1. ESTRACE [Suspect]
     Indication: MENOPAUSAL SYMPTOMS
     Dates: start: 19920101, end: 20010101
  2. AYGESTIN [Suspect]
     Indication: MENOPAUSAL SYMPTOMS
     Dates: start: 19920101, end: 20010101
  3. PREMPRO [Suspect]
     Indication: MENOPAUSAL SYMPTOMS
     Dates: start: 19920101, end: 20010101

REACTIONS (1)
  - BREAST CANCER [None]
